FAERS Safety Report 7692158-6 (Version None)
Quarter: 2011Q3

REPORT INFORMATION
  Report Type: 
  Country: None (occurrence: None)
  Receive Date: 20110818
  Receipt Date: 20110809
  Transmission Date: 20111222
  Serious: Yes (Other)
  Sender: FDA-Public Use
  Company Number: PHHY2011TR69099

PATIENT
  Sex: Female

DRUGS (1)
  1. ZOLEDRONOC ACID [Suspect]
     Indication: OSTEOPOROSIS POSTMENOPAUSAL
     Dosage: 5 MG/100ML ONCE PER YEAR
     Route: 042
     Dates: start: 20110715

REACTIONS (6)
  - FATIGUE [None]
  - PHARYNGITIS [None]
  - HYPERTENSION [None]
  - PHARYNGEAL INFLAMMATION [None]
  - PYREXIA [None]
  - PAIN [None]
